APPROVED DRUG PRODUCT: CEFOTAXIME
Active Ingredient: CEFOTAXIME SODIUM
Strength: EQ 1GM BASE/VIAL
Dosage Form/Route: INJECTABLE;INJECTION
Application: A065197 | Product #001
Applicant: WOCKHARDT LTD
Approved: Aug 29, 2006 | RLD: No | RS: No | Type: DISCN